FAERS Safety Report 7906131-3 (Version None)
Quarter: 2011Q4

REPORT INFORMATION
  Report Type: 
  Country: None (occurrence: None)
  Receive Date: 20111027
  Receipt Date: 20101108
  Transmission Date: 20120403
  Serious: Yes (Hospitalization)
  Sender: FDA-Public Use
  Company Number: 2010-3809

PATIENT
  Age: 9 Year
  Sex: Female

DRUGS (3)
  1. INCRELEX [Suspect]
     Indication: INSULIN-LIKE GROWTH FACTOR DECREASED
     Dosage: SEE IMAGE
     Dates: start: 20081209
  2. INCRELEX [Suspect]
     Indication: INSULIN-LIKE GROWTH FACTOR DECREASED
     Dosage: SEE IMAGE
     Dates: start: 20071126, end: 20081209
  3. INCRELEX [Suspect]
     Indication: INSULIN-LIKE GROWTH FACTOR DECREASED
     Dosage: SEE IMAGE
     Dates: start: 20070925, end: 20071126

REACTIONS (6)
  - LIP SWELLING [None]
  - HYPOGLYCAEMIA [None]
  - EYELID OEDEMA [None]
  - PARAESTHESIA [None]
  - INJECTION SITE INDURATION [None]
  - INJECTION SITE PRURITUS [None]
